FAERS Safety Report 8152870-1 (Version None)
Quarter: 2012Q1

REPORT INFORMATION
  Report Type: 
  Country: None (occurrence: None)
  Receive Date: 20120215
  Receipt Date: 20120206
  Transmission Date: 20120608
  Serious: Yes (Other)
  Sender: FDA-Public Use
  Company Number: 1201-013

PATIENT
  Age: 88 Year
  Sex: Male

DRUGS (1)
  1. EYLEA [Suspect]
     Indication: AGE-RELATED MACULAR DEGENERATION
     Dosage: 2 MG, ONCE INTRAVITREAL
     Dates: start: 20111228, end: 20111228

REACTIONS (9)
  - CORNEAL OEDEMA [None]
  - FUNGAL INFECTION [None]
  - VITREOUS FLOATERS [None]
  - ENDOPHTHALMITIS [None]
  - CONJUNCTIVAL HAEMORRHAGE [None]
  - INTRAOCULAR PRESSURE DECREASED [None]
  - ECCHYMOSIS [None]
  - VISUAL ACUITY REDUCED [None]
  - VITRITIS [None]
